FAERS Safety Report 8393528-3 (Version None)
Quarter: 2012Q2

REPORT INFORMATION
  Report Type: 
  Country: None (occurrence: None)
  Receive Date: 20120529
  Receipt Date: 20120516
  Transmission Date: 20120825
  Serious: Yes (Hospitalization)
  Sender: FDA-Public Use
  Company Number: US-MYLANLABS-2012S1010183

PATIENT
  Age: 60 Year
  Sex: Male

DRUGS (4)
  1. TACROLIMUS [Suspect]
     Route: 065
  2. PREDNISONE [Concomitant]
     Route: 048
  3. MYCOPHENOLATE MOFETIL [Concomitant]
     Route: 048
  4. QUETIAPINE [Concomitant]
     Route: 065

REACTIONS (14)
  - ELECTROENCEPHALOGRAM ABNORMAL [None]
  - NEGATIVISM [None]
  - STARING [None]
  - NEUROTOXICITY [None]
  - CATATONIA [None]
  - ECHOPRAXIA [None]
  - MUSCLE RIGIDITY [None]
  - AGITATION [None]
  - AKATHISIA [None]
  - ANXIETY [None]
  - CONFUSIONAL STATE [None]
  - TREMOR [None]
  - APHASIA [None]
  - ANOSOGNOSIA [None]
